FAERS Safety Report 7293534-6 (Version None)
Quarter: 2011Q1

REPORT INFORMATION
  Report Type: 
  Country: None (occurrence: None)
  Receive Date: 20110202
  Receipt Date: 20110124
  Transmission Date: 20110831
  Serious: Yes (Other)
  Sender: FDA-Public Use
  Company Number: COL_05198_2011

PATIENT
  Age: 83 Year
  Sex: Male

DRUGS (3)
  1. IRISH SPRING DEODORANT SOAP - ORIGINAL [Suspect]
     Dosage: (1 DF QD, [APPLYING IT WITH HIS HANDS ] TRANSDERMAL)
     Route: 062
  2. ANTIHYPERTENSIVES [Concomitant]
  3. COUMADIN [Concomitant]

REACTIONS (1)
  - SKIN CANCER [None]
